FAERS Safety Report 5897685-X (Version None)
Quarter: 2008Q3

REPORT INFORMATION
  Report Type: 
  Country: None (occurrence: None)
  Receive Date: 20080924
  Receipt Date: 20080924
  Transmission Date: 20090109
  Serious: Yes (Hospitalization)
  Sender: FDA-Public Use
  Company Number: None

PATIENT
  Age: 65 Year
  Sex: Male
  Weight: 61.2356 kg

DRUGS (2)
  1. PAROXETINE HCL [Suspect]
     Indication: DEPRESSION
     Dosage: 20MG Q 24 HOURS PO, 1ST AND ONLY DOSE
     Route: 048
     Dates: start: 20080910, end: 20080910
  2. NEUPOGEN [Suspect]
     Indication: NEUTROPENIA
     Dosage: 300MCG 3 TIMES WEEKLY SQ, 1ST AND ONLY DOSE
     Route: 058
     Dates: start: 20080910, end: 20080910

REACTIONS (5)
  - CHILLS [None]
  - DIARRHOEA [None]
  - DIZZINESS [None]
  - HYPERHIDROSIS [None]
  - NAUSEA [None]
